FAERS Safety Report 8523037 (Version 3)
Quarter: 2013Q4

REPORT INFORMATION
  Report Type: Spontaneous
  Country: CA (occurrence: CA)
  Receive Date: 20120420
  Receipt Date: 20131203
  Transmission Date: 20140711
  Serious: Yes (Hospitalization, Disabling, Other)
  Sender: FDA-Public Use
  Company Number: CA-JNJFOC-20120405759

PATIENT
  Age: 33 Year
  Sex: Female
  Weight: 75 kg

DRUGS (5)
  1. REMICADE [Suspect]
     Indication: COLITIS ULCERATIVE
     Dosage: 4 MAINTENANCE DOSES
     Route: 042
  2. REMICADE [Suspect]
     Indication: COLITIS ULCERATIVE
     Route: 042
     Dates: start: 20111208
  3. IMURAN [Suspect]
     Indication: COLITIS ULCERATIVE
     Route: 065
     Dates: start: 201112, end: 201112
  4. MESALAMINE [Concomitant]
     Route: 065
  5. TECTA [Concomitant]
     Route: 065

REACTIONS (11)
  - Hepatic failure [Unknown]
  - Cholelithiasis [Recovering/Resolving]
  - Bile duct obstruction [Recovering/Resolving]
  - Colitis ulcerative [Recovering/Resolving]
  - Vomiting [Unknown]
  - Nausea [Unknown]
  - Investigation [Unknown]
  - Pancreatitis [Unknown]
  - Herpes zoster [Unknown]
  - Weight fluctuation [Unknown]
  - Arthralgia [Unknown]
